FAERS Safety Report 6032161-5 (Version None)
Quarter: 2009Q1

REPORT INFORMATION
  Report Type: 
  Country: None (occurrence: None)
  Receive Date: 20090107
  Receipt Date: 20081226
  Transmission Date: 20090719
  Serious: Yes (Death, Life-Threatening, Hospitalization, Other)
  Sender: FDA-Public Use
  Company Number: 2003JP006781

PATIENT
  Age: 16 Year
  Sex: Female
  Weight: 38 kg

DRUGS (13)
  1. PROTOPIC [Suspect]
     Indication: DERMATITIS ATOPIC
     Dosage: 0.1%, TOPICAL; 0.075%, TOPICAL; 0.05%, BID, TOPICAL
     Route: 061
     Dates: start: 20000711, end: 20000824
  2. PROTOPIC [Suspect]
     Indication: DERMATITIS ATOPIC
     Dosage: 0.1%, TOPICAL; 0.075%, TOPICAL; 0.05%, BID, TOPICAL
     Route: 061
     Dates: start: 20000825, end: 20021201
  3. PROTOPIC [Suspect]
     Indication: DERMATITIS ATOPIC
     Dosage: 0.1%, TOPICAL; 0.075%, TOPICAL; 0.05%, BID, TOPICAL
     Route: 061
     Dates: start: 20030515, end: 20030801
  4. NEORAL [Suspect]
     Dosage: 25 MG, ORAL; 50 MG, ORAL; 25 MG, ORAL; 25 MG, QOD, ORAL
     Route: 048
     Dates: start: 20030605, end: 20030610
  5. NEORAL [Suspect]
     Dosage: 25 MG, ORAL; 50 MG, ORAL; 25 MG, ORAL; 25 MG, QOD, ORAL
     Route: 048
     Dates: start: 20030611, end: 20030703
  6. NEORAL [Suspect]
     Dosage: 25 MG, ORAL; 50 MG, ORAL; 25 MG, ORAL; 25 MG, QOD, ORAL
     Route: 048
     Dates: start: 20030807, end: 20030801
  7. NEORAL [Suspect]
     Dosage: 25 MG, ORAL; 50 MG, ORAL; 25 MG, ORAL; 25 MG, QOD, ORAL
     Route: 048
     Dates: start: 20030704, end: 20030806
  8. IPD [Concomitant]
  9. NERISONE [Concomitant]
  10. FULMETA    (MOMETASONE FUROATE) [Concomitant]
  11. MYCOSTATIN [Concomitant]
  12. MIYA-BM /JPN/ [Concomitant]
  13. PREDNISOLONE [Concomitant]

REACTIONS (13)
  - ADRENAL INSUFFICIENCY [None]
  - ALOPECIA [None]
  - ANAEMIA [None]
  - APPLICATION SITE IRRITATION [None]
  - DYSPNOEA [None]
  - IMMUNOSUPPRESSION [None]
  - LIVER INJURY [None]
  - MENORRHAGIA [None]
  - MYCOSIS FUNGOIDES [None]
  - NAIL CANDIDA [None]
  - PYREXIA [None]
  - SPLENOMEGALY [None]
  - WITHDRAWAL SYNDROME [None]
